FAERS Safety Report 16753042 (Version 28)
Quarter: 2021Q1

REPORT INFORMATION
  Report Type: Spontaneous
  Country: CA (occurrence: CA)
  Receive Date: 20190829
  Receipt Date: 20210315
  Transmission Date: 20210419
  Serious: Yes (Other)
  Sender: FDA-Public Use
  Company Number: CA-CELLTRION INC.-2019CA023052

PATIENT

DRUGS (27)
  1. INFLECTRA [Suspect]
     Active Substance: INFLIXIMAB-DYYB
     Dosage: 10 MG/KG (800 MG) AT 0, 2, 6, THEN EVERY 4 WEEKS
     Route: 042
     Dates: start: 20200117, end: 20201202
  2. INFLECTRA [Suspect]
     Active Substance: INFLIXIMAB-DYYB
     Dosage: 10 MG/KG (800 MG) AT 0, 2, 6, THEN EVERY 4 WEEKS
     Route: 042
     Dates: start: 20200325
  3. IRON [Concomitant]
     Active Substance: IRON
     Dosage: UNK, INFUSIONS
     Route: 065
  4. INFLECTRA [Suspect]
     Active Substance: INFLIXIMAB-DYYB
     Dosage: 400 MG, AT 0, 2, 6, THEN EVERY 8 WEEKS
     Route: 042
     Dates: start: 20190906
  5. INFLECTRA [Suspect]
     Active Substance: INFLIXIMAB-DYYB
     Dosage: 400 MG, AT 0, 2, 6, THEN EVERY 8 WEEKS
     Route: 042
     Dates: start: 20191128
  6. INFLECTRA [Suspect]
     Active Substance: INFLIXIMAB-DYYB
     Dosage: 400 MG, AT 0, 2, 6, THEN EVERY 8 WEEKS
     Route: 042
     Dates: start: 20191128
  7. INFLECTRA [Suspect]
     Active Substance: INFLIXIMAB-DYYB
     Dosage: 10 MG/KG (800 MG) AT 0, 2, 6, THEN EVERY 4 WEEKS
     Route: 042
     Dates: start: 20200908
  8. INFLECTRA [Suspect]
     Active Substance: INFLIXIMAB-DYYB
     Dosage: 400 MG EVERY 4 WEEKS
     Route: 042
     Dates: start: 20210105
  9. INFLECTRA [Suspect]
     Active Substance: INFLIXIMAB-DYYB
     Indication: COLITIS ULCERATIVE
     Dosage: 400 MG, AT 0, 2, 6, THEN EVERY 8 WEEKS
     Route: 042
     Dates: start: 20190725, end: 20191008
  10. INFLECTRA [Suspect]
     Active Substance: INFLIXIMAB-DYYB
     Dosage: 400 MG EVERY 4 WEEKS
     Route: 042
     Dates: start: 20191231
  11. INFLECTRA [Suspect]
     Active Substance: INFLIXIMAB-DYYB
     Dosage: 10 MG/KG (800 MG) AT 0, 2, 6, THEN EVERY 4 WEEKS
     Route: 042
     Dates: start: 20200224
  12. INFLECTRA [Suspect]
     Active Substance: INFLIXIMAB-DYYB
     Dosage: 10 MG/KG (800 MG) AT 0, 2, 6, THEN EVERY 4 WEEKS
     Route: 042
     Dates: start: 20200617
  13. INFLECTRA [Suspect]
     Active Substance: INFLIXIMAB-DYYB
     Dosage: 400 MG EVERY 4 WEEKS
     Route: 042
     Dates: start: 20210203
  14. MEZAVANT [Concomitant]
     Active Substance: MESALAMINE
     Dosage: 4 DF, DAILY
     Route: 065
  15. PREDNISONE. [Concomitant]
     Active Substance: PREDNISONE
     Dosage: 6 DF, 1X/DAY
     Dates: start: 20190620
  16. INFLECTRA [Suspect]
     Active Substance: INFLIXIMAB-DYYB
     Dosage: 10 MG/KG (800 MG) AT 0, 2, 6, THEN EVERY 4 WEEKS
     Route: 042
     Dates: start: 20200129
  17. INFLECTRA [Suspect]
     Active Substance: INFLIXIMAB-DYYB
     Dosage: 10 MG/KG (800 MG) AT 0, 2, 6, THEN EVERY 4 WEEKS
     Route: 042
     Dates: start: 20201006
  18. IRON [Concomitant]
     Active Substance: IRON
     Dosage: UNK (INFUSIONS BOOKED? 5 INFUSIONS IN JULY AND AUGUST)
     Route: 065
  19. MEZAVANT [Concomitant]
     Active Substance: MESALAMINE
     Dosage: (4 A DAY)
     Route: 065
  20. INFLECTRA [Suspect]
     Active Substance: INFLIXIMAB-DYYB
     Dosage: 400 MG, AT 0, 2, 6, THEN EVERY 8 WEEKS
     Route: 042
     Dates: start: 20190809
  21. INFLECTRA [Suspect]
     Active Substance: INFLIXIMAB-DYYB
     Dosage: 400 MG EVERY 4 WEEKS
     Route: 042
     Dates: start: 20191214
  22. INFLECTRA [Suspect]
     Active Substance: INFLIXIMAB-DYYB
     Dosage: 10 MG/KG (800 MG) AT 0, 2, 6, THEN EVERY 4 WEEKS
     Route: 042
     Dates: start: 20200811
  23. INFLECTRA [Suspect]
     Active Substance: INFLIXIMAB-DYYB
     Dosage: 400 MG, AT 0, 2, 6, THEN EVERY 8 WEEKS
     Route: 042
     Dates: start: 20191101, end: 20191231
  24. INFLECTRA [Suspect]
     Active Substance: INFLIXIMAB-DYYB
     Dosage: 10 MG/KG (800 MG) AT 0, 2, 6, THEN EVERY 4 WEEKS
     Route: 042
     Dates: start: 20200422
  25. INFLECTRA [Suspect]
     Active Substance: INFLIXIMAB-DYYB
     Dosage: 10 MG/KG (800 MG) AT 0, 2, 6, THEN EVERY 4 WEEKS
     Route: 042
     Dates: start: 20200715
  26. INFLECTRA [Suspect]
     Active Substance: INFLIXIMAB-DYYB
     Dosage: 400 MG EVERY 4 WEEKS
     Route: 042
     Dates: start: 20210304
  27. MEZAVANT [Concomitant]
     Active Substance: MESALAMINE
     Dosage: 4 PER DAY
     Route: 065

REACTIONS (15)
  - Fatigue [Unknown]
  - Weight increased [Unknown]
  - Condition aggravated [Recovered/Resolved]
  - Weight decreased [Unknown]
  - Heart rate decreased [Unknown]
  - Drug level below therapeutic [Recovered/Resolved]
  - Depressed mood [Unknown]
  - Blood pressure increased [Unknown]
  - Faecal calprotectin increased [Unknown]
  - Off label use [Unknown]
  - Drug level above therapeutic [Unknown]
  - Inappropriate schedule of product administration [Unknown]
  - Incorrect dose administered [Unknown]
  - Alopecia [Not Recovered/Not Resolved]
  - Intentional product use issue [Unknown]

NARRATIVE: CASE EVENT DATE: 2019
